FAERS Safety Report 18292479 (Version 4)
Quarter: 2024Q1

REPORT INFORMATION
  Report Type: Spontaneous
  Country: FR (occurrence: FR)
  Receive Date: 20200922
  Receipt Date: 20240221
  Transmission Date: 20240410
  Serious: Yes (Life-Threatening, Hospitalization, Other)
  Sender: FDA-Public Use
  Company Number: FR-STADA-207559

PATIENT
  Age: 73 Year
  Sex: Male

DRUGS (19)
  1. CIPROFLOXACIN [Suspect]
     Active Substance: CIPROFLOXACIN
     Indication: Chemotherapy
     Dosage: 750 MILLIGRAM, TWO TIMES A DAY (1500 MILLIGRAM, ONCE A DAY)
     Route: 065
  2. CIPROFLOXACIN [Suspect]
     Active Substance: CIPROFLOXACIN
     Indication: Aeromonas infection
  3. CIPROFLOXACIN [Suspect]
     Active Substance: CIPROFLOXACIN
     Indication: Antibiotic therapy
  4. MEROPENEM [Suspect]
     Active Substance: MEROPENEM
     Indication: Antibiotic therapy
     Dosage: 6 GRAM, ONCE A DAY
     Route: 065
  5. MEROPENEM [Suspect]
     Active Substance: MEROPENEM
     Indication: Aeromonas infection
  6. IDARUBICIN [Suspect]
     Active Substance: IDARUBICIN
     Indication: Acute myeloid leukaemia
     Dosage: UNK (CONSOLIDATION CHEMOTHERAPY COURSE)
     Route: 065
  7. IDARUBICIN [Suspect]
     Active Substance: IDARUBICIN
     Indication: Chemotherapy
  8. CYTARABINE [Suspect]
     Active Substance: CYTARABINE
     Indication: Acute myeloid leukaemia
     Dosage: UNK (CONSOLIDATION CHEMOTHERAPY COURSE/ INDUCTION CHEMOTHERAPY)
     Route: 065
  9. CYTARABINE [Suspect]
     Active Substance: CYTARABINE
     Indication: Chemotherapy
  10. VANCOMYCIN [Suspect]
     Active Substance: VANCOMYCIN
     Indication: Antibiotic therapy
     Dosage: 2 GRAM, ONCE A DAY
     Route: 065
  11. LOMUSTINE [Suspect]
     Active Substance: LOMUSTINE
     Indication: Chemotherapy
     Dosage: UNK
     Route: 065
  12. LOMUSTINE [Suspect]
     Active Substance: LOMUSTINE
     Indication: Acute myeloid leukaemia
  13. SULFAMETHOXAZOLE AND TRIMETHOPRIM [Suspect]
     Active Substance: SULFAMETHOXAZOLE\TRIMETHOPRIM
     Indication: Product used for unknown indication
     Dosage: 800/40 MG, TWO TIMES A DAY
     Route: 065
  14. AZACITIDINE [Suspect]
     Active Substance: AZACITIDINE
     Indication: Acute myeloid leukaemia
     Dosage: 75 MILLIGRAM/SQ. METER, ONCE A DAY
     Route: 065
  15. CYTARABINE [Suspect]
     Active Substance: CYTARABINE
     Indication: Acute myeloid leukaemia
     Dosage: UNK
     Route: 065
  16. CEFEPIME [Concomitant]
     Active Substance: CEFEPIME HYDROCHLORIDE
     Indication: Antibiotic therapy
     Dosage: 6 GRAM, ONCE A DAY
     Route: 065
  17. VANCOMYCIN [Concomitant]
     Active Substance: VANCOMYCIN
     Indication: Antibiotic therapy
     Dosage: 2 GRAM, ONCE A DAY
     Route: 065
  18. PIPERACILLIN AND TAZOBACTAM [Concomitant]
     Active Substance: PIPERACILLIN SODIUM\TAZOBACTAM SODIUM
     Indication: Antibiotic therapy
     Dosage: 500 MILLIGRAM, FOUR TIMES/DAY (4 G)
     Route: 065
  19. AMIKACIN [Concomitant]
     Active Substance: AMIKACIN
     Indication: Antibiotic therapy
     Dosage: 1800 MILLIGRAM (SINGLE DOSE)
     Route: 065

REACTIONS (8)
  - Septic shock [Recovered/Resolved]
  - Drug resistance [Unknown]
  - Necrotising fasciitis [Recovered/Resolved]
  - Aeromonas infection [Recovered/Resolved]
  - Abscess limb [Recovered/Resolved]
  - Abscess bacterial [Recovered/Resolved]
  - Condition aggravated [Unknown]
  - Pathogen resistance [Unknown]
